FAERS Safety Report 6755637-1 (Version None)
Quarter: 2010Q2

REPORT INFORMATION
  Report Type: 
  Country: None (occurrence: None)
  Receive Date: 20100604
  Receipt Date: 20100514
  Transmission Date: 20101027
  Serious: Yes (Hospitalization, Other)
  Sender: FDA-Public Use
  Company Number: US-BAYER-201013336NA

PATIENT
  Age: 46 Year
  Sex: Female
  Weight: 95 kg

DRUGS (24)
  1. YAZ [Suspect]
     Indication: DRUG USE FOR UNKNOWN INDICATION
     Route: 048
     Dates: start: 20091001, end: 20091111
  2. SYNTHROID [Concomitant]
     Indication: THYROID DISORDER
     Dates: start: 20091121
  3. ANTIBIOTICS NOS [Concomitant]
  4. TEGRETOL [Concomitant]
     Indication: CONVULSION
  5. TEGRETOL [Concomitant]
  6. PEPCID [Concomitant]
     Indication: ANTACID THERAPY
  7. LITHIUM CARBONATE [Concomitant]
     Indication: BIPOLAR DISORDER
     Dates: start: 20091119
  8. LITHIUM CARBONATE [Concomitant]
     Dates: start: 20090601, end: 20091119
  9. LITHIUM CARBONATE [Concomitant]
  10. IMATISEN [Concomitant]
     Indication: CONSTIPATION
  11. CELEXA [Concomitant]
     Indication: DEPRESSION
     Dates: start: 20091119
  12. TYLENOL [Concomitant]
     Indication: HEADACHE
  13. DESYREL [Concomitant]
     Indication: ANXIETY
     Dates: start: 20091119, end: 20100101
  14. ZOCOR [Concomitant]
     Indication: BLOOD CHOLESTEROL INCREASED
     Dates: start: 20091101
  15. ASPIRIN [Concomitant]
     Indication: THROMBOSIS PROPHYLAXIS
  16. PLAVIX [Concomitant]
     Indication: THROMBOSIS PROPHYLAXIS
     Dates: start: 20091101
  17. LEVOTHYROXINE SODIUM [Concomitant]
     Dates: start: 20091101
  18. BURPROPION [Concomitant]
     Dates: start: 20081201, end: 20090201
  19. EPITOL [Concomitant]
     Dates: start: 20090501, end: 20090801
  20. EPITOL [Concomitant]
     Dates: start: 20091201
  21. FAMOTIDINE [Concomitant]
     Dates: start: 20091101
  22. IMODIUM [Concomitant]
     Indication: DIARRHOEA
  23. LIPITOR [Concomitant]
  24. COUMADIN [Concomitant]
     Indication: CEREBRAL THROMBOSIS

REACTIONS (13)
  - ABASIA [None]
  - CEREBRAL THROMBOSIS [None]
  - COGNITIVE DISORDER [None]
  - DISTURBANCE IN ATTENTION [None]
  - DYSARTHRIA [None]
  - DYSPHAGIA [None]
  - HEMIANOPIA HOMONYMOUS [None]
  - HEMIPARESIS [None]
  - HYPERTONIA [None]
  - ISCHAEMIC STROKE [None]
  - MEMORY IMPAIRMENT [None]
  - MENTAL IMPAIRMENT [None]
  - URINARY TRACT INFECTION [None]
